FAERS Safety Report 11337110 (Version 1)
Quarter: 2015Q3

REPORT INFORMATION
  Report Type: Spontaneous
  Country: FR (occurrence: FR)
  Receive Date: 20150804
  Receipt Date: 20150804
  Transmission Date: 20151125
  Serious: Yes (Life-Threatening, Other)
  Sender: FDA-Public Use
  Company Number: PHHY2015FR091019

PATIENT
  Age: 86 Year
  Sex: Male

DRUGS (15)
  1. SPIRONOLACTONE. [Concomitant]
     Active Substance: SPIRONOLACTONE
     Indication: PRODUCT USED FOR UNKNOWN INDICATION
     Route: 065
  2. DIGOXIN. [Concomitant]
     Active Substance: DIGOXIN
     Indication: PRODUCT USED FOR UNKNOWN INDICATION
     Dosage: 0.25 MG, QD
     Route: 065
  3. OCTAPLEX [Concomitant]
     Active Substance: COAGULATION FACTOR IX HUMAN\COAGULATION FACTOR VII HUMAN\COAGULATION FACTOR X HUMAN\PROTEIN C\PROTEIN S HUMAN\PROTHROMBIN
     Indication: ANTICOAGULANT THERAPY
     Route: 065
     Dates: start: 20150616
  4. ISOFUNDINE [Concomitant]
     Active Substance: ACETIC ACID\CALCIUM CATION\MAGNESIUM CATION\MALIC ACID\POTASSIUM CATION\SODIUM CHLORIDE
     Indication: CARDIOVASCULAR INSUFFICIENCY
     Dosage: 1500 ML, UNK
     Route: 065
     Dates: start: 201506, end: 201506
  5. PERMIXON [Concomitant]
     Active Substance: SAW PALMETTO
     Indication: PRODUCT USED FOR UNKNOWN INDICATION
     Route: 065
  6. SUPRANE [Suspect]
     Active Substance: DESFLURANE
     Indication: GENERAL ANAESTHESIA
     Route: 055
     Dates: start: 20150616, end: 20150617
  7. PHYSIOLOGICAL SALINE SOLUTION [Concomitant]
     Active Substance: SODIUM CHLORIDE
     Indication: CARDIOVASCULAR INSUFFICIENCY
     Route: 065
     Dates: start: 201506, end: 20150617
  8. AMOXICILLIN CLAVULANIC ACID SANDOZ [Suspect]
     Active Substance: AMOXICILLIN\CLAVULANIC ACID
     Indication: ANTIBIOTIC THERAPY
     Route: 042
     Dates: start: 20150616, end: 20150617
  9. ULTIVA [Suspect]
     Active Substance: REMIFENTANIL HYDROCHLORIDE
     Indication: GENERAL ANAESTHESIA
     Dosage: 281 UG, UNK
     Route: 042
     Dates: start: 20150617, end: 20150617
  10. PREVISCAN [Concomitant]
     Active Substance: FLUINDIONE
     Indication: PRODUCT USED FOR UNKNOWN INDICATION
     Route: 065
  11. BICARBONATE [Concomitant]
     Active Substance: BICARBONATE ION
     Indication: CARDIOVASCULAR INSUFFICIENCY
     Dosage: 250 ML, UNK
     Route: 065
     Dates: start: 201506, end: 201506
  12. HYPNOMIDATE [Suspect]
     Active Substance: ETOMIDATE SULFATE
     Indication: GENERAL ANAESTHESIA
     Dosage: 10 MG, ONCE/SINGLE
     Route: 042
     Dates: start: 20150616, end: 20150616
  13. RAPIFEN [Suspect]
     Active Substance: ALFENTANIL HYDROCHLORIDE
     Indication: GENERAL ANAESTHESIA
     Dosage: 1 MG, ONCE/SINGLE
     Route: 042
     Dates: start: 20150616, end: 20150616
  14. PROPOFOL LIPURO [Suspect]
     Active Substance: PROPOFOL
     Indication: GENERAL ANAESTHESIA
     Dosage: 75 MG, ONCE/SINGLE
     Route: 042
     Dates: start: 20150616, end: 20150616
  15. NOREPINEPHRINE [Concomitant]
     Active Substance: NOREPINEPHRINE\NOREPINEPHRINE BITARTRATE
     Indication: PRODUCT USED FOR UNKNOWN INDICATION
     Dosage: 0.14 UG/KG, UNK
     Route: 041
     Dates: start: 20150617, end: 20150617

REACTIONS (2)
  - Urticaria [Recovered/Resolved]
  - Cardiac arrest [Recovered/Resolved]

NARRATIVE: CASE EVENT DATE: 20150617
